FAERS Safety Report 7800288-0 (Version None)
Quarter: 2011Q4

REPORT INFORMATION
  Report Type: 
  Country: None (occurrence: None)
  Receive Date: 20111006
  Receipt Date: 20110930
  Transmission Date: 20120403
  Serious: Yes (Hospitalization)
  Sender: FDA-Public Use
  Company Number: FR-GLAXOSMITHKLINE-B0751867A

PATIENT
  Sex: Female

DRUGS (4)
  1. LAMICTAL [Suspect]
     Indication: EPILEPSY
     Dosage: 4MGKD PER DAY
     Route: 048
     Dates: start: 20100301, end: 20110826
  2. ARTANE [Suspect]
     Indication: DYSTONIA
     Dosage: 16MG THREE TIMES PER DAY
     Route: 048
     Dates: start: 20110101, end: 20110826
  3. MIGLUSTAT [Concomitant]
     Indication: NIEMANN-PICK DISEASE
     Dosage: 400MG PER DAY
     Route: 048
     Dates: start: 20100601
  4. DEPAKENE [Suspect]
     Indication: EPILEPSY
     Dosage: 31MGK PER DAY
     Route: 048
     Dates: start: 20100301, end: 20110826

REACTIONS (7)
  - NEUTROPENIA [None]
  - FACTOR V DEFICIENCY [None]
  - THROMBOCYTOPENIA [None]
  - FACTOR VII DEFICIENCY [None]
  - ACTIVATED PARTIAL THROMBOPLASTIN TIME PROLONGED [None]
  - LEUKOPENIA [None]
  - PROTHROMBIN LEVEL DECREASED [None]
